FAERS Safety Report 7499369-3 (Version None)
Quarter: 2011Q2

REPORT INFORMATION
  Report Type: 
  Country: None (occurrence: None)
  Receive Date: 20110524
  Receipt Date: 20110324
  Transmission Date: 20111010
  Serious: Yes (Hospitalization)
  Sender: FDA-Public Use
  Company Number: JP-JNJFOC-20101004443

PATIENT
  Sex: Female
  Weight: 42 kg

DRUGS (28)
  1. REMICADE [Suspect]
     Indication: RHEUMATOID ARTHRITIS
     Dosage: RECEIVED 1 INFUSION TOTAL
     Route: 042
     Dates: start: 20080111
  2. REMICADE [Suspect]
     Dosage: RECEIVED 1 INFUSION TOTAL
     Route: 042
     Dates: start: 20080307
  3. REMICADE [Suspect]
     Dosage: RECEIVED 1 INFUSION TOTAL
     Route: 042
  4. REMICADE [Suspect]
     Dosage: RECEIVED 1 INFUSION TOTAL
     Route: 042
     Dates: start: 20080626
  5. AMARYL [Concomitant]
     Indication: DIABETES MELLITUS
     Route: 048
     Dates: start: 20020322, end: 20100128
  6. DIOVAN [Concomitant]
     Indication: HYPERTENSION
     Route: 048
     Dates: start: 20040707
  7. FERROUS CITRATE [Concomitant]
     Indication: ANAEMIA
     Route: 048
     Dates: start: 20090918, end: 20100208
  8. REMICADE [Suspect]
     Dosage: RECEIVED 1 INFUSION TOTAL
     Route: 042
     Dates: start: 20090529
  9. REMICADE [Suspect]
     Dosage: RECEIVED 1 INFUSION TOTAL
     Route: 042
     Dates: start: 20090918
  10. REMICADE [Suspect]
     Dosage: RECEIVED 1 INFUSION TOTAL
     Route: 042
  11. REMICADE [Suspect]
     Dosage: RECEIVED 1 INFUSION TOTAL
     Route: 042
  12. REMICADE [Suspect]
     Dosage: RECEIVED 1 INFUSION TOTAL
     Route: 042
     Dates: start: 20071019
  13. REMICADE [Suspect]
     Dosage: RECEIVED 1 INFUSION TOTAL
     Route: 042
     Dates: start: 20071002
  14. METFFORMIN HYDROCHLORIDE [Concomitant]
     Indication: HYPERLIPIDAEMIA
     Route: 048
     Dates: start: 20090707, end: 20100207
  15. METFORMIN HCL [Concomitant]
     Indication: DIABETES MELLITUS
     Route: 048
     Dates: start: 20090915, end: 20100128
  16. REMICADE [Suspect]
     Dosage: RECEIVED 1 INFUSION TOTAL
     Route: 042
     Dates: start: 20081017
  17. REMICADE [Suspect]
     Dosage: RECEIVED 1 INFUSION TOTAL
     Route: 042
     Dates: start: 20090724
  18. REMICADE [Suspect]
     Dosage: RECEIVED 1 INFUSION TOTAL
     Route: 042
  19. PREDNISOLONE [Suspect]
     Indication: RHEUMATOID ARTHRITIS
     Route: 048
     Dates: start: 19950110
  20. REMICADE [Suspect]
     Dosage: RECEIVED 1 INFUSION TOTAL
     Route: 042
     Dates: start: 20100108, end: 20100127
  21. METHOTREXATE [Suspect]
     Indication: RHEUMATOID ARTHRITIS
     Route: 048
     Dates: start: 20070803, end: 20100227
  22. AMLODIPINE [Concomitant]
     Indication: HYPERTENSION
     Route: 048
     Dates: start: 19990224
  23. ZOLPIDEM [Concomitant]
     Indication: INSOMNIA
     Route: 048
     Dates: start: 20030528
  24. MUCOSTA [Concomitant]
     Indication: GASTRITIS
     Route: 048
     Dates: start: 20031126
  25. REMICADE [Suspect]
     Dosage: RECEIVED 1 INFUSION TOTAL
     Route: 042
  26. REMICADE [Suspect]
     Dosage: RECEIVED 1 INFUSION TOTAL
     Route: 042
  27. REMICADE [Suspect]
     Dosage: RECEIVED 1 INFUSION TOTAL
     Route: 042
  28. REMICADE [Suspect]
     Dosage: RECEIVED 1 INFUSION TOTAL
     Route: 042

REACTIONS (5)
  - LIVER DISORDER [None]
  - PERITONEAL TUBERCULOSIS [None]
  - PLEURAL EFFUSION [None]
  - PULMONARY TUBERCULOSIS [None]
  - TUBERCULOSIS GASTROINTESTINAL [None]
